FAERS Safety Report 18990357 (Version 2)
Quarter: 2021Q1

REPORT INFORMATION
  Report Type: Report from Study
  Country: NO (occurrence: NO)
  Receive Date: 20210310
  Receipt Date: 20210312
  Transmission Date: 20210420
  Serious: Yes (Hospitalization)
  Sender: FDA-Public Use
  Company Number: NO-ROCHE-2777649

PATIENT
  Age: 26 Year
  Sex: Male
  Weight: 86 kg

DRUGS (8)
  1. ETOPOSIDE. [Suspect]
     Active Substance: ETOPOSIDE
     Indication: SMALL CELL LUNG CANCER
     Route: 065
     Dates: start: 20210126
  2. PINEX (NORWAY) [Concomitant]
     Indication: BACK PAIN
     Dates: start: 20210216
  3. ATEZOLIZUMAB. [Suspect]
     Active Substance: ATEZOLIZUMAB
     Indication: SMALL CELL LUNG CANCER
     Route: 042
     Dates: start: 20210126, end: 20210222
  4. PREDNISOLONE. [Concomitant]
     Active Substance: PREDNISOLONE
     Dates: start: 20210221
  5. SULFAMETHOXAZOLE/TRIMETHOPRIM [Concomitant]
     Active Substance: SULFAMETHOXAZOLE\TRIMETHOPRIM
     Dosage: 400MG/80 MG
     Dates: start: 20210209
  6. PREDNISOLONE. [Concomitant]
     Active Substance: PREDNISOLONE
     Dates: start: 20210216, end: 20210218
  7. SEROXAT [Concomitant]
     Active Substance: PAROXETINE HYDROCHLORIDE
     Dates: start: 20170901
  8. SOLU?MEDROL [Concomitant]
     Active Substance: METHYLPREDNISOLONE SODIUM SUCCINATE
     Indication: PNEUMONITIS
     Dates: start: 20210219, end: 20210220

REACTIONS (2)
  - Pneumonitis [Recovered/Resolved]
  - Embolism [Recovered/Resolved with Sequelae]

NARRATIVE: CASE EVENT DATE: 20210204
